FAERS Safety Report 22029454 (Version 1)
Quarter: 2023Q1

REPORT INFORMATION
  Report Type: Spontaneous
  Country: US (occurrence: US)
  Receive Date: 20230223
  Receipt Date: 20230223
  Transmission Date: 20230417
  Serious: No
  Sender: FDA-Public Use
  Company Number: US-MYLANLABS-2023M1016583

PATIENT
  Sex: Female
  Weight: 64.41 kg

DRUGS (1)
  1. CLONIDINE TRANSDERMAL SYSTEM [Suspect]
     Active Substance: CLONIDINE
     Indication: Blood pressure abnormal
     Dosage: 0.2 MILLIGRAM, QD (ONCE A WEEK) 0.2 MILLIGRAM/DAY
     Route: 062

REACTIONS (4)
  - Discomfort [Unknown]
  - Application site irritation [Unknown]
  - Hypersensitivity [Unknown]
  - Product physical issue [Unknown]
